FAERS Safety Report 10203950 (Version 4)
Quarter: 2014Q3

REPORT INFORMATION
  Report Type: Spontaneous
  Country: IT (occurrence: None)
  Receive Date: 20140523
  Receipt Date: 20140825
  Transmission Date: 20150326
  Serious: Yes (Hospitalization, Other)
  Sender: FDA-Public Use
  Company Number: 2014-IT-006041

PATIENT
  Age: 11 Year
  Sex: Male

DRUGS (14)
  1. PAROXETINE HCL [Concomitant]
     Active Substance: PAROXETINE HYDROCHLORIDE
  2. PRIALT [Suspect]
     Active Substance: ZICONOTIDE ACETATE
     Indication: QUADRIPLEGIA
     Dosage: UNK UG, QH, INTRATHECAL
     Route: 037
     Dates: start: 201209
  3. TETRAVAC [Concomitant]
  4. OXCARBAZEPINE (OXCARBAZEPINE) [Concomitant]
     Active Substance: OXCARBAZEPINE
  5. LEVOTIROXINA (LEVOTHYROXINE SODIUM) [Concomitant]
     Active Substance: LEVOTHYROXINE SODIUM
  6. PRIALT [Suspect]
     Active Substance: ZICONOTIDE ACETATE
     Indication: ASTROCYTOMA
     Dosage: UNK UG, QH, INTRATHECAL
     Route: 037
     Dates: start: 201209
  7. DIAZEPAM (DIAZEPAM) [Concomitant]
     Active Substance: DIAZEPAM
  8. BACLOFEN. [Suspect]
     Active Substance: BACLOFEN
     Indication: QUADRIPLEGIA
     Dosage: UNK UG, QH, INTRATHECAL
     Route: 037
     Dates: start: 200709
  9. CLONAZEPAM. [Concomitant]
     Active Substance: CLONAZEPAM
  10. TRIPTORELIN [Concomitant]
     Active Substance: TRIPTORELIN
  11. BACLOFEN. [Suspect]
     Active Substance: BACLOFEN
     Indication: ASTROCYTOMA
     Dosage: UNK UG, QH, INTRATHECAL
     Route: 037
     Dates: start: 200709
  12. MENVEO [Concomitant]
     Active Substance: NEISSERIA MENINGITIDIS GROUP A CAPSULAR OLIGOSACCHARIDE DIPHTHERIA CRM197 PROTEIN CONJUGATE ANTIGEN\NEISSERIA MENINGITIDIS GROUP C CAPSULAR OLIGOSACCHARIDE DIPHTHERIA CRM197 PROTEIN CONJUGATE ANTIGEN\NEISSERIA MENINGITIDIS GROUP W-135 CAPSULAR OLIGOSACCHARIDE DIPHTHERIA CRM197 PROTEIN CONJUGATE ANTI
  13. PREVNAR 13 [Concomitant]
     Active Substance: PNEUMOCOCCAL 13-VALENT CONJUGATE VACCINE
  14. TRAZODONE [Concomitant]
     Active Substance: TRAZODONE HYDROCHLORIDE

REACTIONS (8)
  - Headache [None]
  - Toxic encephalopathy [None]
  - Off label use [None]
  - Drug administration error [None]
  - Hypertensive crisis [None]
  - Vomiting [None]
  - Hypertension [None]
  - Toxicity to various agents [None]

NARRATIVE: CASE EVENT DATE: 20140417
